FAERS Safety Report 11337453 (Version 1)
Quarter: 2015Q3

REPORT INFORMATION
  Report Type: Spontaneous
  Country: US (occurrence: US)
  Receive Date: 20150803
  Receipt Date: 20150803
  Transmission Date: 20151125
  Serious: Yes (Hospitalization)
  Sender: FDA-Public Use
  Company Number: US-ELI_LILLY_AND_COMPANY-US200610001543

PATIENT
  Age: 46 Year
  Sex: Female
  Weight: 141.95 kg

DRUGS (13)
  1. VALIUM [Concomitant]
     Active Substance: DIAZEPAM
     Dosage: 2 MG, 3/D
  2. ZYPREXA [Suspect]
     Active Substance: OLANZAPINE
     Dosage: 20 MG, 2/D
     Dates: start: 2001, end: 200305
  3. KLONOPIN [Concomitant]
     Active Substance: CLONAZEPAM
     Dosage: UNK, UNK
  4. ZYPREXA [Suspect]
     Active Substance: OLANZAPINE
     Dosage: 20 MG, 2/D
     Dates: start: 200306, end: 200410
  5. BUPROPION. [Concomitant]
     Active Substance: BUPROPION
     Dosage: UNK, UNKNOWN
     Dates: start: 200506
  6. ZOLOFT [Concomitant]
     Active Substance: SERTRALINE HYDROCHLORIDE
     Dosage: UNK, 2/D
     Dates: start: 20040920
  7. ZYPREXA [Suspect]
     Active Substance: OLANZAPINE
     Dosage: 15 MG, 2/D
     Dates: start: 20041027, end: 20041209
  8. VISTARIL [Concomitant]
     Active Substance: HYDROXYZINE PAMOATE
  9. ZIPRASIDONE. [Concomitant]
     Active Substance: ZIPRASIDONE
     Dosage: UNK, UNKNOWN
     Dates: start: 20040920, end: 2006
  10. ZOLOFT [Concomitant]
     Active Substance: SERTRALINE HYDROCHLORIDE
     Dosage: UNK, DAILY (1/D)
  11. RISPERDAL                               /SWE/ [Concomitant]
     Dosage: UNK, UNKNOWN
     Dates: start: 2003
  12. XANAX [Concomitant]
     Active Substance: ALPRAZOLAM
     Dosage: 2 MG, 4/D
     Dates: start: 20030722
  13. TOPAMAX [Concomitant]
     Active Substance: TOPIRAMATE
     Dosage: 200 MG, 2/D

REACTIONS (5)
  - Prescribed overdose [Unknown]
  - Diabetes mellitus [Not Recovered/Not Resolved]
  - Weight increased [Unknown]
  - Cardiac disorder [Unknown]
  - Chest pain [Recovered/Resolved]

NARRATIVE: CASE EVENT DATE: 20011115
